FAERS Safety Report 23634856 (Version 1)
Quarter: 2024Q1

REPORT INFORMATION
  Report Type: Report from Study
  Country: IT (occurrence: IT)
  Receive Date: 20240315
  Receipt Date: 20240315
  Transmission Date: 20240409
  Serious: Yes (Other)
  Sender: FDA-Public Use
  Company Number: IT-AUROBINDO-AUR-APL-2024-011648

PATIENT
  Age: 62 Year
  Sex: Male
  Weight: 87 kg

DRUGS (4)
  1. LEVETIRACETAM [Interacting]
     Active Substance: LEVETIRACETAM
     Indication: Seizure
     Dosage: 1000 MILLIGRAM, DAILY
     Route: 065
  2. DABIGATRAN [Interacting]
     Active Substance: DABIGATRAN
     Indication: Ischaemic stroke
     Dosage: UNK
     Route: 048
  3. DABIGATRAN [Interacting]
     Active Substance: DABIGATRAN
     Indication: Anticoagulant therapy
  4. AMIODARONE [Concomitant]
     Active Substance: AMIODARONE
     Indication: Product used for unknown indication
     Dosage: UNK
     Route: 065

REACTIONS (3)
  - Ischaemic stroke [Unknown]
  - Drug interaction [Unknown]
  - Drug level decreased [Unknown]
